FAERS Safety Report 7961669-8 (Version None)
Quarter: 2011Q4

REPORT INFORMATION
  Report Type: 
  Country: None (occurrence: None)
  Receive Date: 20111207
  Receipt Date: 20111205
  Transmission Date: 20120403
  Serious: Yes (Other)
  Sender: FDA-Public Use
  Company Number: CA-PFIZER INC-2011296369

PATIENT
  Age: 4 Year
  Sex: Female

DRUGS (1)
  1. PEDIATRIC ADVIL [Suspect]
     Dosage: UNK
     Dates: start: 20111203

REACTIONS (3)
  - LYMPHADENOPATHY [None]
  - SWELLING FACE [None]
  - LIP SWELLING [None]
